FAERS Safety Report 5162184-X (Version None)
Quarter: 2006Q4

REPORT INFORMATION
  Report Type: 
  Country: None (occurrence: None)
  Receive Date: 20061121
  Receipt Date: 20061120
  Transmission Date: 20070319
  Serious: Yes (Death, Hospitalization)
  Sender: FDA-Public Use
  Company Number: 2005-02724

PATIENT
  Age: 68 Year
  Sex: Female

DRUGS (9)
  1. VELCADE [Suspect]
     Indication: MULTIPLE MYELOMA
     Dosage: 1.90 MG, INTRAVENOUS
     Route: 042
     Dates: start: 20050208, end: 20050715
  2. HYDROMORPH CONTIN (HYDROMORPHONE HYDROCHLORIDE) [Concomitant]
  3. CYCLOGYL (CYCLOPENTOLATE HYDROCHLORIDE) [Concomitant]
  4. PRED FORTE [Concomitant]
  5. ATORVASTATIN CALCIUM [Concomitant]
  6. FUROSEMIDE [Concomitant]
  7. PROCHLORPERAZINE [Concomitant]
  8. OMEPRAZOLE [Concomitant]
  9. PAMIDRONATE DISODIUM [Concomitant]

REACTIONS (4)
  - ARRHYTHMIA [None]
  - PNEUMONIA [None]
  - PNEUMONITIS [None]
  - PULMONARY HYPERTENSION [None]
